FAERS Safety Report 16589327 (Version 1)
Quarter: 2019Q3

REPORT INFORMATION
  Report Type: Spontaneous
  Country: US (occurrence: US)
  Receive Date: 20190604
  Receipt Date: 20190604
  Transmission Date: 20191004
  Serious: No
  Sender: FDA-Public Use
  Company Number: None

PATIENT
  Age: 61 Year
  Sex: Male

DRUGS (2)
  1. CAPECITABINE 500 MG [Suspect]
     Active Substance: CAPECITABINE
     Indication: HEPATIC NEOPLASM
     Route: 048
     Dates: start: 20190313
  2. CAPECITABINE 150MG [Suspect]
     Active Substance: CAPECITABINE
     Indication: OESOPHAGEAL CARCINOMA
     Route: 048
     Dates: start: 20190313

REACTIONS (2)
  - Hepatic neoplasm [None]
  - Condition aggravated [None]

NARRATIVE: CASE EVENT DATE: 20190603
